FAERS Safety Report 11936177 (Version 7)
Quarter: 2016Q2

REPORT INFORMATION
  Report Type: Report from Study
  Country: US (occurrence: US)
  Receive Date: 20160121
  Receipt Date: 20160623
  Transmission Date: 20160815
  Serious: Yes (Other)
  Sender: FDA-Public Use
  Company Number: US-AMGEN-USASL2016001766

PATIENT
  Age: 78 Year
  Sex: Male

DRUGS (2)
  1. KYPROLIS [Suspect]
     Active Substance: CARFILZOMIB
     Indication: PRODUCT USED FOR UNKNOWN INDICATION
     Dosage: UNK
     Route: 065
     Dates: end: 20160321
  2. VELCADE [Suspect]
     Active Substance: BORTEZOMIB
     Indication: PRODUCT USED FOR UNKNOWN INDICATION
     Dosage: UNK
     Route: 065

REACTIONS (14)
  - Paranasal sinus neoplasm [Unknown]
  - Asthenia [Unknown]
  - Nerve compression [Unknown]
  - Pain in extremity [Unknown]
  - Malaise [Unknown]
  - Eye disorder [Unknown]
  - Diplopia [Unknown]
  - Impaired driving ability [Unknown]
  - Gait disturbance [Unknown]
  - Dysgeusia [Unknown]
  - Protein total increased [Unknown]
  - Decreased appetite [Unknown]
  - Tension [Unknown]
  - Drug effect incomplete [Unknown]

NARRATIVE: CASE EVENT DATE: 201601
